FAERS Safety Report 5610519-3 (Version None)
Quarter: 2008Q1

REPORT INFORMATION
  Report Type: 
  Country: None (occurrence: None)
  Receive Date: 20080201
  Receipt Date: 20080122
  Transmission Date: 20080703
  Serious: Yes (Other)
  Sender: FDA-Public Use
  Company Number: NO-BRISTOL-MYERS SQUIBB COMPANY-14042253

PATIENT
  Age: 47 Year

DRUGS (6)
  1. CYCLOPHOSPHAMIDE [Suspect]
     Indication: NON-HODGKIN'S LYMPHOMA
     Route: 042
  2. DOXORUBICIN HCL [Suspect]
     Route: 042
  3. ETOPOSIDE [Suspect]
     Route: 042
  4. VINCRISTINE [Suspect]
     Route: 042
  5. RITUXIMAB [Suspect]
  6. PREDNISOLONE [Suspect]

REACTIONS (1)
  - PNEUMOCYSTIS JIROVECI PNEUMONIA [None]
